FAERS Safety Report 14962492 (Version 1)
Quarter: 2018Q2

REPORT INFORMATION
  Report Type: Spontaneous
  Country: US (occurrence: US)
  Receive Date: 20180601
  Receipt Date: 20180601
  Transmission Date: 20180711
  Serious: Yes (Other)
  Sender: FDA-Public Use
  Company Number: US-PFIZER INC-2018216824

PATIENT
  Age: 30 Year
  Sex: Male

DRUGS (4)
  1. GABAPENTIN. [Suspect]
     Active Substance: GABAPENTIN
     Indication: MANIA
     Dosage: 800 MG, 3X/DAY
  2. KEPPRA [Suspect]
     Active Substance: LEVETIRACETAM
     Indication: ANGER
     Dosage: 500 MG, 2X/DAY
  3. PROZAC [Suspect]
     Active Substance: FLUOXETINE HYDROCHLORIDE
     Indication: MANIA
     Dosage: 40 MG, 1X/DAY
  4. KEPPRA [Suspect]
     Active Substance: LEVETIRACETAM
     Indication: MANIA

REACTIONS (4)
  - Drug dependence [Unknown]
  - Pain [Unknown]
  - Tooth fracture [Unknown]
  - Fall [Unknown]

NARRATIVE: CASE EVENT DATE: 201805
